FAERS Safety Report 22313934 (Version 1)
Quarter: 2023Q2

REPORT INFORMATION
  Report Type: Spontaneous
  Country: US (occurrence: US)
  Receive Date: 20230512
  Receipt Date: 20230512
  Transmission Date: 20230721
  Serious: Yes (Other)
  Sender: FDA-Public Use
  Company Number: US-BAYER-2023A062275

PATIENT
  Age: 53 Year
  Sex: Female

DRUGS (3)
  1. CORICIDIN HBP MAXIMUM STRENGTH COLD AND FLU DAY AND NIGHT [Suspect]
     Active Substance: ACETAMINOPHEN\DEXTROMETHORPHAN HYDROBROMIDE\DOXYLAMINE SUCCINATE\GUAIFENESIN
     Indication: Hypersensitivity
     Dosage: 2 CAPSULES IN THE MORNING AND 2 CAPSULES AT NIGHT
     Route: 048
     Dates: start: 20230502, end: 20230503
  2. CORICIDIN HBP MAXIMUM STRENGTH COLD AND FLU DAY AND NIGHT [Suspect]
     Active Substance: ACETAMINOPHEN\DEXTROMETHORPHAN HYDROBROMIDE\DOXYLAMINE SUCCINATE\GUAIFENESIN
     Indication: Nasopharyngitis
  3. LISINOPRIL [Concomitant]
     Active Substance: LISINOPRIL

REACTIONS (2)
  - Foreign body in throat [Unknown]
  - Product use complaint [None]
